FAERS Safety Report 20712301 (Version 1)
Quarter: 2022Q2

REPORT INFORMATION
  Report Type: Spontaneous
  Country: FR (occurrence: FR)
  Receive Date: 20220415
  Receipt Date: 20220415
  Transmission Date: 20220720
  Serious: Yes (Hospitalization)
  Sender: FDA-Public Use
  Company Number: FR-AFSSAPS-CN20220545

PATIENT
  Age: 60 Year
  Sex: Female

DRUGS (4)
  1. AMOXICILLIN [Suspect]
     Active Substance: AMOXICILLIN
     Indication: Bacteraemia
     Dosage: 6 GRAM, ONCE A DAY
     Route: 048
     Dates: start: 20220314, end: 20220318
  2. AMOXICILLIN [Suspect]
     Active Substance: AMOXICILLIN
     Dosage: 12 GRAM, ONCE A DAY
     Route: 048
     Dates: start: 20220318, end: 20220321
  3. AUGMENTIN [Suspect]
     Active Substance: AMOXICILLIN\CLAVULANATE POTASSIUM
     Indication: Bacteraemia
     Dosage: 1 GRAM, 3 TIMES A DAY
     Route: 041
     Dates: start: 20220311, end: 20220314
  4. CEFTRIAXONE SODIUM [Concomitant]
     Active Substance: CEFTRIAXONE SODIUM
     Indication: Bacteraemia
     Dosage: 4 GRAM, ONCE A DAY
     Route: 041
     Dates: start: 20220318, end: 20220321

REACTIONS (1)
  - Pyrexia [Recovered/Resolved]

NARRATIVE: CASE EVENT DATE: 20220312
